FAERS Safety Report 13418388 (Version 1)
Quarter: 2017Q2

REPORT INFORMATION
  Report Type: Spontaneous
  Country: GB (occurrence: GB)
  Receive Date: 20170406
  Receipt Date: 20170406
  Transmission Date: 20170830
  Serious: Yes (Hospitalization, Other)
  Sender: FDA-Public Use
  Company Number: GB-BRISTOL-MYERS SQUIBB COMPANY-BMS-2017-027950

PATIENT

DRUGS (1)
  1. YERVOY [Suspect]
     Active Substance: IPILIMUMAB
     Indication: MALIGNANT MELANOMA
     Dosage: UNK, QCYCLE
     Route: 065

REACTIONS (8)
  - Colitis [Unknown]
  - Abdominal pain [Unknown]
  - Malaise [Unknown]
  - Tachycardia [Unknown]
  - Constipation [Unknown]
  - Blood lactic acid increased [Unknown]
  - Pneumoperitoneum [Unknown]
  - Inflammation [Unknown]
